FAERS Safety Report 12201148 (Version 1)
Quarter: 2016Q1

REPORT INFORMATION
  Report Type: Spontaneous
  Country: US (occurrence: US)
  Receive Date: 20160322
  Receipt Date: 20160322
  Transmission Date: 20160526
  Serious: No
  Sender: FDA-Public Use
  Company Number: US-SA-2015SA095398

PATIENT
  Age: 65 Year
  Sex: Male

DRUGS (1)
  1. NASACORT ALLERGY 24HR [Suspect]
     Active Substance: TRIAMCINOLONE ACETONIDE
     Indication: NASAL CONGESTION
     Dosage: STARTED PRODUCT 3-5 WEEKS AGO.?DOSE: 2 SPRAYS PER NOSTRIL
     Route: 045

REACTIONS (2)
  - Dyspnoea [Unknown]
  - Nasal dryness [Unknown]
